FAERS Safety Report 18465217 (Version 7)
Quarter: 2021Q4

REPORT INFORMATION
  Report Type: Report from Study
  Country: DE (occurrence: DE)
  Receive Date: 20201104
  Receipt Date: 20211119
  Transmission Date: 20220303
  Serious: Yes (Hospitalization, Other)
  Sender: FDA-Public Use
  Company Number: DE-CELGENE-DEU-20201008158

PATIENT
  Age: 74 Year
  Sex: Female
  Weight: 70.7 kg

DRUGS (6)
  1. POMALIDOMIDE [Suspect]
     Active Substance: POMALIDOMIDE
     Indication: Myelofibrosis
     Dosage: 2 MILLIGRAM
     Route: 048
     Dates: start: 20190108
  2. POMALIDOMIDE [Suspect]
     Active Substance: POMALIDOMIDE
     Indication: Off label use
     Route: 048
     Dates: start: 20200113, end: 20201022
  3. POMALIDOMIDE [Suspect]
     Active Substance: POMALIDOMIDE
     Route: 048
     Dates: start: 20201110, end: 20201202
  4. RUXOLITINIB [Suspect]
     Active Substance: RUXOLITINIB
     Indication: Myelofibrosis
     Dosage: 20 MILLIGRAM
     Route: 065
     Dates: start: 20190108, end: 20201022
  5. ASPIRIN [Concomitant]
     Active Substance: ASPIRIN
     Indication: Thrombosis prophylaxis
     Route: 065
     Dates: end: 20201022
  6. AMINOPHYLLINE\QUININE SULFATE [Concomitant]
     Active Substance: AMINOPHYLLINE\QUININE SULFATE
     Indication: Muscle spasms
     Route: 065
     Dates: start: 20200331

REACTIONS (2)
  - Oesophageal adenocarcinoma [Recovered/Resolved with Sequelae]
  - Squamous cell carcinoma of lung [Recovered/Resolved with Sequelae]

NARRATIVE: CASE EVENT DATE: 20201023
